FAERS Safety Report 19903465 (Version 2)
Quarter: 2021Q4

REPORT INFORMATION
  Report Type: Spontaneous
  Country: FR (occurrence: FR)
  Receive Date: 20211001
  Receipt Date: 20211006
  Transmission Date: 20220303
  Serious: Yes (Hospitalization, Other)
  Sender: FDA-Public Use
  Company Number: FR-ORGANON-O2109FRA001903

PATIENT
  Age: 69 Year
  Sex: Female

DRUGS (8)
  1. CARBIDOPA\LEVODOPA [Suspect]
     Active Substance: CARBIDOPA\LEVODOPA
     Indication: Parkinson^s disease
     Dosage: 100 MG IN EVENING ( AT 11PM)
     Route: 048
     Dates: start: 20180404
  2. BENSERAZIDE HYDROCHLORIDE\LEVODOPA [Suspect]
     Active Substance: BENSERAZIDE HYDROCHLORIDE\LEVODOPA
     Indication: Parkinson^s disease
     Dosage: 62.5 MILLIGRAM, 5 TIMES PER DAY
     Route: 048
     Dates: start: 2012
  3. BENSERAZIDE HYDROCHLORIDE\LEVODOPA [Suspect]
     Active Substance: BENSERAZIDE HYDROCHLORIDE\LEVODOPA
     Dosage: 2 TABLETS (ALSO REPORTED AS 125 MG), 6 TIMES PER DAY ( AT 7AM, 10AM, 1PM, 4PM, 7PM AND 10PM)
     Route: 048
     Dates: start: 2019
  4. BENSERAZIDE HYDROCHLORIDE\LEVODOPA [Suspect]
     Active Substance: BENSERAZIDE HYDROCHLORIDE\LEVODOPA
     Indication: Parkinson^s disease
     Dosage: IF NEEDED
     Route: 048
     Dates: start: 2019
  5. FOSAMAX [Concomitant]
     Active Substance: ALENDRONATE SODIUM
     Dosage: 1 TABLET PER WEEK
     Route: 048
     Dates: start: 2019
  6. AZILECT [Concomitant]
     Active Substance: RASAGILINE MESYLATE
     Dosage: 1 MG/DAY ( IN THE MORNING)
     Dates: start: 2019
  7. PRAMIPEXOLE [Concomitant]
     Active Substance: PRAMIPEXOLE
     Dosage: INCREASED TO 1.05, ONCE A WEEK
     Dates: start: 201804
  8. ESTRADIOL [Concomitant]
     Active Substance: ESTRADIOL
     Dosage: EVERY NIGHT
     Dates: start: 2019

REACTIONS (12)
  - Parkinsonism [Unknown]
  - Choking [Unknown]
  - Hallucination [Unknown]
  - Hyperventilation [Unknown]
  - Cognitive disorder [Unknown]
  - Microcytosis [Unknown]
  - Neuromuscular blockade [Unknown]
  - Tremor [Not Recovered/Not Resolved]
  - Dysphonia [Unknown]
  - Flushing [Unknown]
  - Anxiety [Unknown]
  - Depression [Unknown]

NARRATIVE: CASE EVENT DATE: 20180131
